FAERS Safety Report 16305724 (Version 1)
Quarter: 2019Q2

REPORT INFORMATION
  Report Type: Spontaneous
  Country: GB (occurrence: GB)
  Receive Date: 20190513
  Receipt Date: 20190513
  Transmission Date: 20190711
  Serious: Yes (Death)
  Sender: FDA-Public Use
  Company Number: GB-ROCHE-2315193

PATIENT
  Age: 20 Year
  Sex: Female

DRUGS (3)
  1. METHOHEXITONE [Suspect]
     Active Substance: METHOHEXITAL
     Indication: ANAESTHESIA
     Route: 065
  2. DIAZEPAM. [Suspect]
     Active Substance: DIAZEPAM
     Indication: ANXIETY
     Route: 065
  3. ATROPINE. [Suspect]
     Active Substance: ATROPINE
     Indication: APTYALISM
     Route: 065

REACTIONS (1)
  - Cardiac arrest [Fatal]
